FAERS Safety Report 9759136 (Version 1)
Quarter: 2013Q4

REPORT INFORMATION
  Report Type: Spontaneous
  Country: US (occurrence: None)
  Receive Date: 20131216
  Receipt Date: 20131216
  Transmission Date: 20140711
  Serious: Yes (Other)
  Sender: FDA-Public Use
  Company Number: 163-21880-12110737(0)

PATIENT
  Age: 60 Year
  Sex: Male

DRUGS (1)
  1. REVLIMID ( LENALIDOMIDE) ( 25 MILLIGRAM, CAPSULES) [Suspect]
     Indication: LYMPHOCYTIC LEUKAEMIA
     Dosage: 5 MG, 1 IN 1 D, PO?15-10MG, 1 IN 1 D, PO ?5 MG, 21 IN 21 D, PO? ?

REACTIONS (3)
  - Neutropenia [None]
  - Pyrexia [None]
  - Oropharyngeal pain [None]
